APPROVED DRUG PRODUCT: NATAZIA
Active Ingredient: DIENOGEST; ESTRADIOL VALERATE
Strength: N/A,2MG,3MG,N/A,N/A;3MG,2MG,2MG,1MG,N/A
Dosage Form/Route: TABLET;ORAL
Application: N022252 | Product #001
Applicant: BAYER HEALTHCARE PHARMACEUTICALS INC
Approved: May 6, 2010 | RLD: Yes | RS: Yes | Type: RX

PATENTS:
Patent 8071577 | Expires: May 13, 2026
Patent 8153616 | Expires: Jan 30, 2028